FAERS Safety Report 13789389 (Version 1)
Quarter: 2017Q3

REPORT INFORMATION
  Report Type: Spontaneous
  Country: US (occurrence: US)
  Receive Date: 20170725
  Receipt Date: 20170725
  Transmission Date: 20171127
  Serious: No
  Sender: FDA-Public Use
  Company Number: US-ASTRAZENECA-2017SE74680

PATIENT
  Age: 663 Month
  Sex: Female
  Weight: 63.5 kg

DRUGS (5)
  1. PEPCID [Concomitant]
     Active Substance: FAMOTIDINE
     Indication: DYSPEPSIA
     Dosage: 10.0MG UNKNOWN
     Route: 065
  2. SYMBICORT [Suspect]
     Active Substance: BUDESONIDE\FORMOTEROL FUMARATE DIHYDRATE
     Indication: ASTHMA
     Dosage: 80/4.5 MCG, 2 INHALATIONS TWICE A DAY
     Route: 055
     Dates: start: 201707
  3. BABY ASPIRIN [Concomitant]
     Active Substance: ASPIRIN
     Route: 065
  4. VITAMINS NOS [Concomitant]
     Active Substance: VITAMINS
     Route: 065
  5. ATIVAN [Concomitant]
     Active Substance: LORAZEPAM
     Indication: ANXIETY
     Route: 065

REACTIONS (12)
  - Lung disorder [Unknown]
  - Pain [Unknown]
  - Hypersensitivity [Unknown]
  - Stress [Unknown]
  - Intentional product misuse [Recovered/Resolved]
  - Dyspnoea [Unknown]
  - Pulmonary pain [Unknown]
  - Back pain [Unknown]
  - Asthma [Unknown]
  - Anxiety [Unknown]
  - Musculoskeletal chest pain [Unknown]
  - Circumstance or information capable of leading to medication error [Unknown]

NARRATIVE: CASE EVENT DATE: 201707
